FAERS Safety Report 25376329 (Version 4)
Quarter: 2025Q3

REPORT INFORMATION
  Report Type: Report from Study
  Country: JP (occurrence: JP)
  Receive Date: 20250529
  Receipt Date: 20250908
  Transmission Date: 20251021
  Serious: Yes (Hospitalization)
  Sender: ABBVIE
  Company Number: JP-ABBVIE-6302628

PATIENT
  Age: 65 Year
  Sex: Male
  Weight: 65 kg

DRUGS (4)
  1. RINVOQ [Suspect]
     Active Substance: UPADACITINIB
     Indication: Rheumatoid arthritis
     Route: 048
     Dates: start: 20201214
  2. METHOTREXATE [Concomitant]
     Active Substance: METHOTREXATE
     Indication: Rheumatoid arthritis
     Dosage: 6 MG/WEEK
     Dates: start: 20200521, end: 20210628
  3. METHOTREXATE [Concomitant]
     Active Substance: METHOTREXATE
     Indication: Rheumatoid arthritis
     Dosage: 8 MG/WEEK
     Dates: start: 20140131, end: 20210520
  4. ETODOLAC [Concomitant]
     Active Substance: ETODOLAC
     Indication: Rheumatoid arthritis
     Dates: start: 20201116, end: 20210610

REACTIONS (2)
  - Hepatic neoplasm [Unknown]
  - Herpes zoster [Recovered/Resolved]

NARRATIVE: CASE EVENT DATE: 20220303
